FAERS Safety Report 7974554-2 (Version None)
Quarter: 2011Q4

REPORT INFORMATION
  Report Type: 
  Country: None (occurrence: None)
  Receive Date: 20111213
  Receipt Date: 20111130
  Transmission Date: 20120403
  Serious: Yes (Hospitalization)
  Sender: FDA-Public Use
  Company Number: US-BAYER-2011-064048

PATIENT
  Age: 33 Year
  Sex: Female
  Weight: 116.55 kg

DRUGS (5)
  1. IBUPROFEN (ADVIL) [Concomitant]
     Dosage: UNK UNK, PRN
     Route: 048
  2. YAZ [Suspect]
     Indication: CONTRACEPTION
     Dosage: UNK
     Dates: start: 20090801
  3. OXYBUTYNIN [Concomitant]
     Dosage: 5 MG, QD
     Route: 048
  4. NAPROXEN (ALEVE) [Concomitant]
     Route: 048
  5. YAZ [Suspect]
     Indication: MENORRHAGIA
     Dosage: UNK
     Dates: start: 20090801

REACTIONS (9)
  - FEAR OF DEATH [None]
  - DEEP VEIN THROMBOSIS [None]
  - PAIN [None]
  - GENERAL PHYSICAL HEALTH DETERIORATION [None]
  - INJURY [None]
  - PAIN IN EXTREMITY [None]
  - ANXIETY [None]
  - EMOTIONAL DISTRESS [None]
  - MYALGIA [None]
